FAERS Safety Report 9691308 (Version 1)
Quarter: 2013Q4

REPORT INFORMATION
  Report Type: Spontaneous
  Country: JP (occurrence: JP)
  Receive Date: 20131115
  Receipt Date: 20131115
  Transmission Date: 20140711
  Serious: Yes (Other)
  Sender: FDA-Public Use
  Company Number: PHHY2013JP130499

PATIENT
  Age: 39 Year
  Sex: Female

DRUGS (2)
  1. RIFAMPICIN SANDOZ [Suspect]
     Dosage: 150 MG, UNK
     Route: 048
     Dates: start: 201208, end: 201209
  2. ETHAMBUTOL SANDOZ [Suspect]
     Route: 048
     Dates: start: 201208, end: 201209

REACTIONS (1)
  - Drug reaction with eosinophilia and systemic symptoms [Unknown]
